FAERS Safety Report 9575149 (Version 2)
Quarter: 2013Q4

REPORT INFORMATION
  Report Type: Spontaneous
  Country: BR (occurrence: BR)
  Receive Date: 20131001
  Receipt Date: 20131001
  Transmission Date: 20140711
  Serious: Yes (Hospitalization, Other)
  Sender: FDA-Public Use
  Company Number: BR-PFIZER INC-2012285633

PATIENT
  Age: 78 Year
  Sex: Male
  Weight: 91 kg

DRUGS (13)
  1. SUTENT [Suspect]
     Indication: RENAL CANCER
     Dosage: 50 MG, CYCLIC (CYCLE 4 PER 2), 1X/DAY
     Route: 048
     Dates: start: 20120912, end: 201307
  2. SUTENT [Suspect]
     Indication: METASTASES TO LUNG
     Dosage: 37.5 MG, UNK
  3. SUTENT [Suspect]
     Dosage: 25 MG, 1X/DAY
     Route: 048
     Dates: end: 2013
  4. GLIFAGE [Concomitant]
     Dosage: STRENGTH 50 UG, UNSPECIFIED DOSE TWICE DAILY
  5. LOSARTAN [Concomitant]
     Indication: HYPERTENSION
     Dosage: UNK
  6. AMLODIPINE [Concomitant]
     Indication: HYPERTENSION
     Dosage: UNK
  7. INSULIN [Concomitant]
     Indication: DIABETES MELLITUS
     Dosage: UNK
  8. ROSUVASTATIN [Concomitant]
     Dosage: UNK
  9. AAS [Concomitant]
     Dosage: UNK
  10. DEPAKOTE [Concomitant]
     Dosage: UNK
  11. CLORANA [Concomitant]
     Dosage: UNK
  12. SIMVASTATIN [Concomitant]
     Dosage: UNK
  13. METFORMIN [Concomitant]
     Indication: DIABETES MELLITUS
     Dosage: UNK

REACTIONS (7)
  - Hyponatraemia [Unknown]
  - Hypertension [Recovering/Resolving]
  - Erythema [Not Recovered/Not Resolved]
  - Nausea [Recovering/Resolving]
  - Blood sodium decreased [Unknown]
  - Rash [Unknown]
  - Asthenia [Unknown]
